FAERS Safety Report 9557081 (Version 2)
Quarter: 2013Q3

REPORT INFORMATION
  Report Type: Report from Study
  Country: MX (occurrence: MX)
  Receive Date: 20130926
  Receipt Date: 20130926
  Transmission Date: 20140515
  Serious: Yes (Other)
  Sender: FDA-Public Use
  Company Number: PHHY2013MX092187

PATIENT
  Age: 83 Year
  Sex: Female

DRUGS (18)
  1. DIOVAN [Suspect]
     Indication: HYPERTENSION
     Dosage: 160 MG, DAILY
     Route: 048
     Dates: end: 20130906
  2. LEVOTHYROXINE [Concomitant]
     Indication: HYPOTHYROIDISM
     Dosage: 50 MG, DAILY
     Dates: start: 1981
  3. CALCITRIOL [Concomitant]
     Dosage: 1 UKN, DAILY
  4. NITROFURANTOIN [Concomitant]
     Dosage: 1 UKN, DAILY
  5. OMEPRAZOLE [Concomitant]
     Dosage: 1 UKN, DAILY
  6. PENTOXIFYLLINE [Concomitant]
     Dosage: 2 UKN, DAILY
  7. ORCIPRENALINE [Concomitant]
     Dosage: 1.5 DF, TID
  8. ISOSORBIDE [Concomitant]
     Dosage: UNK UKN, TID
  9. ISOSORBIDE [Concomitant]
     Dosage: 1 UKN, DAILY
     Route: 060
  10. ACIDO FOLICO [Concomitant]
     Dosage: UNK UKN, UNK
  11. B COMPLEX [Concomitant]
     Dosage: UNK UKN, UNK
  12. CLOPIDOGREL [Concomitant]
     Dosage: UNK UKN, UNK
  13. ASPIRINA [Concomitant]
     Dosage: 0.5 DF, DAILY
  14. ENALAPRIL [Concomitant]
     Dosage: 1 UKN, DAILY
  15. NIFEDIPINE [Concomitant]
     Dosage: UNK UKN, UNK
  16. PRAVASTATIN [Concomitant]
     Dosage: 4 UKN, DAILY
  17. PARACETAMOL [Concomitant]
     Dosage: UNK UKN, UNK
  18. INSULIN [Concomitant]
     Dosage: UNK UKN, PRN

REACTIONS (6)
  - Angina pectoris [Not Recovered/Not Resolved]
  - Chest pain [Not Recovered/Not Resolved]
  - Sinus arrhythmia [Recovering/Resolving]
  - Bradycardia [Recovered/Resolved]
  - Arterial occlusive disease [Not Recovered/Not Resolved]
  - Renal impairment [Unknown]
